FAERS Safety Report 14308654 (Version 3)
Quarter: 2018Q1

REPORT INFORMATION
  Report Type: Spontaneous
  Country: US (occurrence: US)
  Receive Date: 20171220
  Receipt Date: 20180119
  Transmission Date: 20180509
  Serious: Yes (Death, Hospitalization, Other)
  Sender: FDA-Public Use
  Company Number: US-SAOL THERAPEUTICS-2017SAO03481

PATIENT
  Sex: Female
  Weight: 71.2 kg

DRUGS (15)
  1. BACLOFEN. [Suspect]
     Active Substance: BACLOFEN
     Dosage: 180.32 ?G, \DAY
     Route: 037
     Dates: start: 20171116
  2. MELOXICAM. [Concomitant]
     Active Substance: MELOXICAM
  3. GABAPENTIN. [Concomitant]
     Active Substance: GABAPENTIN
  4. CIPROFLOXACIN. [Concomitant]
     Active Substance: CIPROFLOXACIN
  5. QUETIAPINE FUMERATE [Concomitant]
     Active Substance: QUETIAPINE FUMARATE
  6. DIAZEPAM. [Concomitant]
     Active Substance: DIAZEPAM
  7. NITROFURANTOIN. [Concomitant]
     Active Substance: NITROFURANTOIN
  8. ESCITALOPRAM [Concomitant]
     Active Substance: ESCITALOPRAM OXALATE
  9. VIIBRYD [Concomitant]
     Active Substance: VILAZODONE HYDROCHLORIDE
  10. FENTANYL. [Suspect]
     Active Substance: FENTANYL
     Dosage: 54.10 ?G, \DAY
     Route: 037
     Dates: start: 20171116
  11. ESTRADIOL. [Concomitant]
     Active Substance: ESTRADIOL
  12. BUPIVACAINE. [Suspect]
     Active Substance: BUPIVACAINE
     Dosage: 7.213 MG, \DAY
     Route: 037
     Dates: start: 20171116
  13. DILAUDID [Suspect]
     Active Substance: HYDROMORPHONE HYDROCHLORIDE
     Dosage: UNK
     Dates: start: 20171114
  14. ONDANSETRON [Concomitant]
     Active Substance: ONDANSETRON
  15. FENTANYL TRANSDERMAL SYSTEM [Concomitant]
     Active Substance: FENTANYL
     Route: 062

REACTIONS (7)
  - Death [Fatal]
  - Spinal operation [Unknown]
  - Vomiting [Unknown]
  - Suicidal ideation [Unknown]
  - Pneumonia [Unknown]
  - Influenza like illness [Unknown]
  - Bladder pain [Unknown]

NARRATIVE: CASE EVENT DATE: 2017
